FAERS Safety Report 20620910 (Version 2)
Quarter: 2022Q2

REPORT INFORMATION
  Report Type: Spontaneous
  Country: US (occurrence: US)
  Receive Date: 20220322
  Receipt Date: 20220510
  Transmission Date: 20220721
  Serious: Yes (Hospitalization, Other)
  Sender: FDA-Public Use
  Company Number: US-Calliditas-2022CAL00003

PATIENT
  Age: 53 Year
  Sex: Male
  Weight: 95.3 kg

DRUGS (1)
  1. TARPEYO [Suspect]
     Active Substance: BUDESONIDE
     Indication: Nephritic syndrome
     Dosage: 16 MG ONCE DAILY
     Route: 050
     Dates: start: 20220203

REACTIONS (1)
  - Atrial fibrillation [Unknown]
